FAERS Safety Report 18881838 (Version 3)
Quarter: 2023Q2

REPORT INFORMATION
  Report Type: Spontaneous
  Country: US (occurrence: US)
  Receive Date: 20210212
  Receipt Date: 20230504
  Transmission Date: 20230721
  Serious: Yes (Other)
  Sender: FDA-Public Use
  Company Number: US-GILEAD-2021-0515536

PATIENT
  Age: 53 Year
  Sex: Male
  Weight: 175 kg

DRUGS (78)
  1. ATRIPLA [Suspect]
     Active Substance: EFAVIRENZ\EMTRICITABINE\TENOFOVIR DISOPROXIL FUMARATE
     Indication: HIV infection
     Dosage: UNK
     Route: 048
  2. ATRIPLA [Suspect]
     Active Substance: EFAVIRENZ\EMTRICITABINE\TENOFOVIR DISOPROXIL FUMARATE
     Dosage: UNK
     Route: 048
     Dates: start: 201106, end: 2017
  3. ATRIPLA [Suspect]
     Active Substance: EFAVIRENZ\EMTRICITABINE\TENOFOVIR DISOPROXIL FUMARATE
     Dosage: UNK
     Route: 048
     Dates: start: 201203, end: 201809
  4. ATRIPLA [Suspect]
     Active Substance: EFAVIRENZ\EMTRICITABINE\TENOFOVIR DISOPROXIL FUMARATE
     Dosage: UNK
     Route: 048
     Dates: start: 201106, end: 201805
  5. EMTRIVA [Concomitant]
     Active Substance: EMTRICITABINE
  6. ODEFSEY [Concomitant]
     Active Substance: EMTRICITABINE\RILPIVIRINE HYDROCHLORIDE\TENOFOVIR ALAFENAMIDE FUMARATE
  7. SUSTIVA [Concomitant]
     Active Substance: EFAVIRENZ
  8. SYMTUZA [Concomitant]
     Active Substance: COBICISTAT\DARUNAVIR\EMTRICITABINE\TENOFOVIR ALAFENAMIDE
  9. FINASTERIDE [Concomitant]
     Active Substance: FINASTERIDE
  10. VIAGRA [Concomitant]
     Active Substance: SILDENAFIL CITRATE
  11. ACETAMINOPHEN [Concomitant]
     Active Substance: ACETAMINOPHEN
  12. AMITRIPTYLINE [Concomitant]
     Active Substance: AMITRIPTYLINE
  13. AMOXICILLIN [Concomitant]
     Active Substance: AMOXICILLIN
  14. ASPIRIN [Concomitant]
     Active Substance: ASPIRIN
  15. AZITHROMYCIN [Concomitant]
     Active Substance: AZITHROMYCIN
  16. BISACODYL [Concomitant]
     Active Substance: BISACODYL
  17. BUPIVACAINE [Concomitant]
     Active Substance: BUPIVACAINE
  18. CALCIUM CARBONATE [Concomitant]
     Active Substance: CALCIUM CARBONATE
  19. CEFAZOLIN [Concomitant]
     Active Substance: CEFAZOLIN
  20. CELECOXIB [Concomitant]
     Active Substance: CELECOXIB
  21. CEPHALEXIN [Concomitant]
     Active Substance: CEPHALEXIN
  22. CHLORHEXIDINE [Concomitant]
     Active Substance: CHLORHEXIDINE
  23. CHLORZOXAZONE [Concomitant]
     Active Substance: CHLORZOXAZONE
  24. CLINDAMYCIN [Concomitant]
     Active Substance: CLINDAMYCIN
  25. CODEINE [Concomitant]
     Active Substance: CODEINE
  26. CYCLOBENZAPRINE [Concomitant]
     Active Substance: CYCLOBENZAPRINE
  27. DAPSONE [Concomitant]
     Active Substance: DAPSONE
  28. DESONIDE [Concomitant]
     Active Substance: DESONIDE
  29. DICYCLOMINE [Concomitant]
     Active Substance: DICYCLOMINE HYDROCHLORIDE
  30. DIPHENHYDRAMINE [Concomitant]
     Active Substance: DIPHENHYDRAMINE
  31. DOCUSATE [Concomitant]
     Active Substance: DOCUSATE
  32. ENOXAPARIN [Concomitant]
     Active Substance: ENOXAPARIN
  33. EPINEPHRINE [Concomitant]
     Active Substance: EPINEPHRINE
  34. ERYTHROMYCIN [Concomitant]
     Active Substance: ERYTHROMYCIN
  35. FLUCONAZOLE [Concomitant]
     Active Substance: FLUCONAZOLE
  36. FLURBIPROFEN [Concomitant]
     Active Substance: FLURBIPROFEN
  37. HYALURONATE SODIUM [Concomitant]
     Active Substance: HYALURONATE SODIUM
  38. HYDROCODONE [Concomitant]
     Active Substance: HYDROCODONE
  39. HYDROMORPHONE [Concomitant]
     Active Substance: HYDROMORPHONE
  40. IBUPROFEN [Concomitant]
     Active Substance: IBUPROFEN
  41. INDOMETHACIN SODIUM [Concomitant]
     Active Substance: INDOMETHACIN SODIUM
  42. KETOROLAC [Concomitant]
     Active Substance: KETOROLAC TROMETHAMINE
  43. LABETALOL [Concomitant]
     Active Substance: LABETALOL\LABETALOL HYDROCHLORIDE
  44. LEVITRA [Concomitant]
     Active Substance: VARDENAFIL HYDROCHLORIDE
  45. LEVOFLOXACIN [Concomitant]
     Active Substance: LEVOFLOXACIN
  46. MAGNESIUM [Concomitant]
     Active Substance: MAGNESIUM
  47. METHOCARBAMOL [Concomitant]
     Active Substance: METHOCARBAMOL
  48. METHYLPREDNISOLONE [Concomitant]
     Active Substance: METHYLPREDNISOLONE
  49. MORPHINE [Concomitant]
     Active Substance: MORPHINE
  50. MOXIFLOXACIN [Concomitant]
     Active Substance: MOXIFLOXACIN
  51. MUPIROCIN [Concomitant]
     Active Substance: MUPIROCIN
  52. NAPROXEN [Concomitant]
     Active Substance: NAPROXEN
  53. NYSTATIN [Concomitant]
     Active Substance: NYSTATIN
  54. ONDANSETRON [Concomitant]
     Active Substance: ONDANSETRON
  55. OXYCODONE [Concomitant]
     Active Substance: OXYCODONE
  56. PENICILLIN G [Concomitant]
     Active Substance: PENICILLIN G
  57. PERMETHRIN [Concomitant]
     Active Substance: PERMETHRIN
  58. PIROXICAM [Concomitant]
     Active Substance: PIROXICAM
  59. PODOFILOX [Concomitant]
     Active Substance: PODOFILOX
  60. POTASSIUM CHLORIDE [Concomitant]
     Active Substance: POTASSIUM CHLORIDE
  61. PREDNISONE [Concomitant]
     Active Substance: PREDNISONE
  62. PROMETHAZINE [Concomitant]
     Active Substance: PROMETHAZINE HYDROCHLORIDE
  63. RANITIDINE [Concomitant]
     Active Substance: RANITIDINE
  64. SALICYLIC ACID [Concomitant]
     Active Substance: SALICYLIC ACID
  65. SCOPOLAMINE [Concomitant]
     Active Substance: SCOPOLAMINE
  66. SHINGRIX [Concomitant]
     Active Substance: RECOMBINANT VARICELLA ZOSTER VIRUS (VZV) GLYCOPROTEIN E
  67. SILDENAFIL [Concomitant]
     Active Substance: SILDENAFIL
  68. SIMETHICONE (DIMETHICONE) [Concomitant]
     Active Substance: DIMETHICONE
  69. SODIUM BICARBONATE [Concomitant]
     Active Substance: SODIUM BICARBONATE
  70. SULFAMETHOXAZOLE [Concomitant]
     Active Substance: SULFAMETHOXAZOLE
  71. TAMSULOSIN [Concomitant]
     Active Substance: TAMSULOSIN
  72. TAZOBACTAM [Concomitant]
     Active Substance: TAZOBACTAM
  73. TERBINAFINE [Concomitant]
     Active Substance: TERBINAFINE
  74. TRAMADOL [Concomitant]
     Active Substance: TRAMADOL
  75. TRANEXAMIC ACID [Concomitant]
     Active Substance: TRANEXAMIC ACID
  76. TRIAMCINOLONE [Concomitant]
     Active Substance: TRIAMCINOLONE
  77. VALACYCLOVIR [Concomitant]
     Active Substance: VALACYCLOVIR HYDROCHLORIDE
  78. VANCOMYCIN [Concomitant]
     Active Substance: VANCOMYCIN

REACTIONS (9)
  - Osteoporosis [Not Recovered/Not Resolved]
  - Pain [Not Recovered/Not Resolved]
  - Emotional distress [Not Recovered/Not Resolved]
  - Anxiety [Not Recovered/Not Resolved]
  - Anhedonia [Not Recovered/Not Resolved]
  - Bone demineralisation [Not Recovered/Not Resolved]
  - Osteoarthritis [Not Recovered/Not Resolved]
  - Hand fracture [Not Recovered/Not Resolved]
  - Fracture pain [Unknown]

NARRATIVE: CASE EVENT DATE: 20120701
